FAERS Safety Report 5525383-0 (Version None)
Quarter: 2007Q4

REPORT INFORMATION
  Report Type: 
  Country: None (occurrence: None)
  Receive Date: 20071126
  Receipt Date: 20070723
  Transmission Date: 20080405
  Serious: Yes (Other)
  Sender: FDA-Public Use
  Company Number: US-ASTRAZENECA-2007UW03017

PATIENT
  Age: 622 Month
  Sex: Male

DRUGS (3)
  1. SEROQUEL [Suspect]
     Indication: SCHIZOPHRENIA
     Route: 048
     Dates: start: 20030201, end: 20060101
  2. ZYPREXA [Concomitant]
     Dates: start: 19990101
  3. RISPERDAL [Concomitant]
     Dates: start: 20010101

REACTIONS (4)
  - DIABETES MELLITUS [None]
  - LEG AMPUTATION [None]
  - RENAL DISORDER [None]
  - VISUAL DISTURBANCE [None]
